FAERS Safety Report 5117206-9 (Version None)
Quarter: 2006Q3

REPORT INFORMATION
  Report Type: 
  Country: None (occurrence: None)
  Receive Date: 20060926
  Receipt Date: 20060911
  Transmission Date: 20061208
  Serious: Yes (Other)
  Sender: FDA-Public Use
  Company Number: 2006113575

PATIENT
  Sex: Male

DRUGS (2)
  1. CELEBREX [Suspect]
     Dosage: ORAL
     Route: 048
     Dates: start: 20040901
  2. VIOXX [Suspect]
     Dosage: ORAL
     Route: 048
     Dates: start: 19990520, end: 20040831

REACTIONS (2)
  - EYE DISORDER [None]
  - VASCULAR OCCLUSION [None]
